FAERS Safety Report 10704559 (Version 1)
Quarter: 2015Q1

REPORT INFORMATION
  Report Type: Spontaneous
  Country: US (occurrence: US)
  Receive Date: 20150112
  Receipt Date: 20150112
  Transmission Date: 20150721
  Serious: No
  Sender: FDA-Public Use
  Company Number: US-BRISTOL-MYERS SQUIBB COMPANY-BMS-2014-006735

PATIENT
  Sex: Male
  Weight: 78.91 kg

DRUGS (4)
  1. SIMVASTATIN. [Concomitant]
     Active Substance: SIMVASTATIN
     Route: 065
  2. TAMSULOSIN [Concomitant]
     Active Substance: TAMSULOSIN
     Route: 065
  3. SPRYCEL [Suspect]
     Active Substance: DASATINIB
     Indication: CHRONIC MYELOID LEUKAEMIA
     Dosage: 100 UNK, UNK
     Route: 065
     Dates: start: 201412
  4. METOPROLOL [Concomitant]
     Active Substance: METOPROLOL
     Route: 065

REACTIONS (2)
  - Asthenia [Unknown]
  - Arthralgia [Unknown]
